FAERS Safety Report 19576511 (Version 1)
Quarter: 2021Q3

REPORT INFORMATION
  Report Type: Spontaneous
  Country: ES (occurrence: ES)
  Receive Date: 20210719
  Receipt Date: 20210719
  Transmission Date: 20211014
  Serious: Yes (Life-Threatening, Hospitalization, Other)
  Sender: FDA-Public Use
  Company Number: ES-CADILA HEALTHCARE LIMITED-ES-ZYDUS-055817

PATIENT

DRUGS (2)
  1. DULOXETINE. [Suspect]
     Active Substance: DULOXETINE
     Indication: PRODUCT USED FOR UNKNOWN INDICATION
     Dosage: AFTER 5 DAYS AFTER ADMISSION, THE PATIENT PROGRESSIVELY IMPROVED UNTIL RESOLUTION OF THE SYMPTOMS, R
     Route: 065
  2. LORAZEPAM. [Concomitant]
     Active Substance: LORAZEPAM
     Indication: MIXED ANXIETY AND DEPRESSIVE DISORDER
     Dosage: UNK
     Route: 065

REACTIONS (13)
  - Opsoclonus myoclonus [Recovered/Resolved]
  - Tachycardia [Recovered/Resolved]
  - Disorientation [Recovered/Resolved]
  - Myoclonus [Recovered/Resolved]
  - Toxicity to various agents [Recovered/Resolved]
  - Mydriasis [Recovered/Resolved]
  - Hallucination [Recovered/Resolved]
  - Pupillary reflex impaired [Recovered/Resolved]
  - Overdose [Recovered/Resolved]
  - Dyskinesia [Recovered/Resolved]
  - Suicide attempt [Recovered/Resolved]
  - Vision blurred [Recovered/Resolved]
  - Delusional perception [Recovered/Resolved]
